FAERS Safety Report 8997896 (Version 1)
Quarter: 2013Q1

REPORT INFORMATION
  Report Type: Report from Study
  Country: JP (occurrence: JP)
  Receive Date: 20130104
  Receipt Date: 20130104
  Transmission Date: 20140127
  Serious: Yes (Other)
  Sender: FDA-Public Use
  Company Number: JP-VERTEX PHARMACEUTICALS INC.-AE-2012-011978

PATIENT
  Age: 76 Year
  Sex: Male

DRUGS (9)
  1. VX-950 (TELAPREVIR) [Suspect]
     Indication: HEPATITIS C
     Dosage: 2250 MG, UNK
     Route: 048
     Dates: start: 20120207, end: 20120229
  2. VX-950 (TELAPREVIR) [Suspect]
     Dosage: 1500 UNK, UNK
     Route: 048
     Dates: start: 20120301, end: 20120314
  3. VX-950 (TELAPREVIR) [Suspect]
     Dosage: 1000 UNK, UNK
     Route: 048
     Dates: start: 20120315
  4. RIBAVIRIN [Suspect]
     Indication: CHRONIC HEPATITIS C
     Dosage: 600 MG, UNK
     Route: 048
     Dates: start: 20120207, end: 20120220
  5. RIBAVIRIN [Suspect]
     Dosage: 400 MG, UNK
     Route: 048
     Dates: start: 20120221, end: 20120227
  6. RIBAVIRIN [Suspect]
     Dosage: 200 MG, UNK
     Route: 048
     Dates: start: 20120228
  7. PEGINTERFERON ALFA-2B [Suspect]
     Indication: CHRONIC HEPATITIS C
     Dosage: 1.3 ?G/KG, UNK
     Route: 058
     Dates: start: 20120207, end: 20120228
  8. PEGINTERFERON ALFA-2B [Suspect]
     Dosage: 0.8 ?G/KG, UNK
     Route: 058
     Dates: start: 20120306, end: 20120501
  9. PEGINTERFERON ALFA-2B [Suspect]
     Dosage: 0.8 ?G/KG, UNK
     Route: 058
     Dates: start: 20120612

REACTIONS (1)
  - Retinopathy [Recovered/Resolved]
